FAERS Safety Report 5798930-1 (Version None)
Quarter: 2008Q3

REPORT INFORMATION
  Report Type: 
  Country: None (occurrence: None)
  Receive Date: 20080701
  Receipt Date: 20080626
  Transmission Date: 20090109
  Serious: Yes (Hospitalization)
  Sender: FDA-Public Use
  Company Number: 235767J08USA

PATIENT
  Age: 52 Year
  Sex: Female
  Weight: 56.6996 kg

DRUGS (2)
  1. REBIF [Suspect]
     Indication: MULTIPLE SCLEROSIS
     Dosage: 44 MCG, 3 IN 1 WEEKS, SUBCUTANEOUS
     Route: 058
     Dates: start: 20041110
  2. LEVOTHYROXINE (LEVOTHYROXINE /0006801/) [Concomitant]

REACTIONS (3)
  - DEHYDRATION [None]
  - HYPOPHAGIA [None]
  - URINARY TRACT INFECTION [None]
